FAERS Safety Report 8923560 (Version 1)
Quarter: 2012Q4

REPORT INFORMATION
  Report Type: 
  Country: JP (occurrence: JP)
  Receive Date: 20121124
  Receipt Date: 20121124
  Transmission Date: 20130627
  Serious: Yes (Hospitalization)
  Sender: FDA-Public Use
  Company Number: JP-009507513-1211JPN007082

PATIENT
  Age: 62 Year
  Sex: Female
  Weight: 50 kg

DRUGS (6)
  1. PEGINTRON [Suspect]
     Indication: CHRONIC HEPATITIS C
     Dosage: 1.5 Microgram per kilogram, qw
     Route: 058
     Dates: start: 20120716
  2. REBETOL [Suspect]
     Indication: CHRONIC HEPATITIS C
     Dosage: 600 mg, qd
     Route: 048
     Dates: start: 20120716, end: 20120805
  3. REBETOL [Suspect]
     Dosage: 200 mg, qd
     Route: 048
     Dates: start: 20120806, end: 20120815
  4. TELAVIC [Suspect]
     Indication: CHRONIC HEPATITIS C
     Dosage: 1500 mg, qd
     Route: 048
     Dates: start: 20120716, end: 20121008
  5. FULMETA [Concomitant]
     Dosage: 0.1% 5g/day
     Route: 061
     Dates: start: 20120723
  6. [THERAPY UNSPECIFIED] [Concomitant]
     Indication: OSTEOPOROSIS PROPHYLAXIS
     Dosage: 35 mg, UNK
     Route: 048
     Dates: start: 20120910

REACTIONS (2)
  - Nodular fasciitis [Recovering/Resolving]
  - Panniculitis [Recovering/Resolving]
